FAERS Safety Report 5397938-8 (Version None)
Quarter: 2007Q3

REPORT INFORMATION
  Report Type: 
  Country: None (occurrence: None)
  Receive Date: 20070724
  Receipt Date: 20070713
  Transmission Date: 20080115
  Serious: Yes (Hospitalization)
  Sender: FDA-Public Use
  Company Number: 2007BI011431

PATIENT
  Age: 55 Year
  Sex: Female

DRUGS (3)
  1. TYSABRI [Suspect]
     Indication: MULTIPLE SCLEROSIS
     Dosage: 300 MG; QM; IV
     Route: 042
     Dates: start: 20070227, end: 20070412
  2. AVONEX [Concomitant]
  3. FIORINAL W/CODEINE [Concomitant]

REACTIONS (11)
  - ABDOMINAL PAIN UPPER [None]
  - ABDOMINAL TENDERNESS [None]
  - DIARRHOEA [None]
  - FALL [None]
  - GASTROINTESTINAL HAEMORRHAGE [None]
  - PSYCHOTIC DISORDER [None]
  - SKULL FRACTURE [None]
  - SYNCOPE [None]
  - ULCER HAEMORRHAGE [None]
  - VIRAL INFECTION [None]
  - VOMITING [None]
